FAERS Safety Report 19079554 (Version 1)
Quarter: 2021Q1

REPORT INFORMATION
  Report Type: Spontaneous
  Country: BR (occurrence: BR)
  Receive Date: 20210331
  Receipt Date: 20210331
  Transmission Date: 20210420
  Serious: Yes (Other)
  Sender: FDA-Public Use
  Company Number: BR-ANIPHARMA-2021-BR-000058

PATIENT
  Sex: Female

DRUGS (1)
  1. CANDESARTAN CILEXETIL AND HYDROCHLOROTHIAZIDE [Suspect]
     Active Substance: CANDESARTAN CILEXETIL\HYDROCHLOROTHIAZIDE
     Indication: PRODUCT USED FOR UNKNOWN INDICATION
     Dosage: 16/12.5 MG ONE TABLET DAILY
     Route: 048

REACTIONS (5)
  - Heart rate decreased [Not Recovered/Not Resolved]
  - Drug ineffective [Unknown]
  - American trypanosomiasis [Not Recovered/Not Resolved]
  - Blood pressure increased [Unknown]
  - Sleep disorder [Not Recovered/Not Resolved]
